FAERS Safety Report 15454437 (Version 1)
Quarter: 2018Q4

REPORT INFORMATION
  Report Type: Spontaneous
  Country: US (occurrence: US)
  Receive Date: 20181002
  Receipt Date: 20181002
  Transmission Date: 20190204
  Serious: Yes (Other)
  Sender: FDA-Public Use
  Company Number: PHEH2018US040487

PATIENT
  Sex: Female

DRUGS (2)
  1. XGEVA [Concomitant]
     Active Substance: DENOSUMAB
     Indication: BONE DENSITY INCREASED
     Dosage: 120 MG, Q3MO
     Dates: start: 201210
  2. LETROZOLE. [Suspect]
     Active Substance: LETROZOLE
     Indication: BREAST CANCER
     Dosage: UNK
     Route: 065
     Dates: start: 2012

REACTIONS (4)
  - Tumour marker increased [Unknown]
  - Breast cancer [Unknown]
  - Drug ineffective [Unknown]
  - Malignant neoplasm progression [Unknown]
